FAERS Safety Report 9121583 (Version 1)
Quarter: 2013Q1

REPORT INFORMATION
  Report Type: Spontaneous
  Country: BR (occurrence: BR)
  Receive Date: 20130227
  Receipt Date: 20130227
  Transmission Date: 20140127
  Serious: Yes (Other)
  Sender: FDA-Public Use
  Company Number: BR-BIOGENIDEC-2013BI018812

PATIENT
  Age: 30 Year
  Sex: Female
  Weight: 132 kg

DRUGS (3)
  1. AVONEX [Suspect]
     Indication: MULTIPLE SCLEROSIS
     Route: 030
     Dates: start: 20081224, end: 201207
  2. LOSARTAN [Concomitant]
     Indication: HYPERTENSION
     Route: 048
  3. MICROPIL [Concomitant]
     Indication: CONTRACEPTION
     Route: 048

REACTIONS (1)
  - Drug-induced liver injury [Recovered/Resolved]
